FAERS Safety Report 18277618 (Version 1)
Quarter: 2020Q3

REPORT INFORMATION
  Report Type: Spontaneous
  Country: IT (occurrence: IT)
  Receive Date: 20200917
  Receipt Date: 20200917
  Transmission Date: 20201103
  Serious: Yes (Hospitalization)
  Sender: FDA-Public Use
  Company Number: IT-TEVA-2020-IT-1826986

PATIENT
  Age: 83 Year
  Sex: Female

DRUGS (1)
  1. CLOZAPINE. [Suspect]
     Active Substance: CLOZAPINE
     Dosage: 150 MG
     Route: 048
     Dates: start: 20200812, end: 20200812

REACTIONS (2)
  - Depressed level of consciousness [Recovering/Resolving]
  - Medication error [Recovering/Resolving]

NARRATIVE: CASE EVENT DATE: 20200812
